FAERS Safety Report 8971101 (Version 3)
Quarter: 2014Q2

REPORT INFORMATION
  Report Type: Spontaneous
  Country: JP (occurrence: JP)
  Receive Date: 20121217
  Receipt Date: 20131018
  Transmission Date: 20141212
  Serious: Yes (Other)
  Sender: FDA-Public Use
  Company Number: JP-PFIZER INC-2012317017

PATIENT
  Sex: 0

DRUGS (1)
  1. SOLU-MEDROL [Suspect]
     Indication: INTERSTITIAL LUNG DISEASE
     Dosage: 1000 MG FOR AN HOUR
     Route: 042

REACTIONS (3)
  - Respiratory distress [Unknown]
  - Oxygen saturation decreased [Unknown]
  - Hyperhidrosis [Unknown]
